FAERS Safety Report 16084263 (Version 1)
Quarter: 2019Q1

REPORT INFORMATION
  Report Type: Spontaneous
  Country: US (occurrence: US)
  Receive Date: 20190214
  Receipt Date: 20190214
  Transmission Date: 20190418
  Serious: No
  Sender: FDA-Public Use
  Company Number: None

PATIENT
  Age: 78 Year
  Sex: Male
  Weight: 95.25 kg

DRUGS (2)
  1. LEVOFLOXACIN. [Suspect]
     Active Substance: LEVOFLOXACIN
     Indication: PNEUMONIA
     Route: 048
     Dates: start: 20181224, end: 20190114
  2. PIPERACILLIN/TAZOBACTAM [Suspect]
     Active Substance: PIPERACILLIN SODIUM\TAZOBACTAM SODIUM
     Dosage: ?          OTHER DOSE:4.5 GM;?
     Route: 042
     Dates: start: 20190114, end: 20190121

REACTIONS (10)
  - Clostridium difficile colitis [None]
  - Lower gastrointestinal haemorrhage [None]
  - Pseudomembranous colitis [None]
  - Acute kidney injury [None]
  - Gastrointestinal haemorrhage [None]
  - Transfusion [None]
  - International normalised ratio increased [None]
  - Shock haemorrhagic [None]
  - Packed red blood cell transfusion [None]
  - Diarrhoea [None]

NARRATIVE: CASE EVENT DATE: 20190213
